FAERS Safety Report 4797092-7 (Version None)
Quarter: 2005Q4

REPORT INFORMATION
  Report Type: 
  Country: None (occurrence: None)
  Receive Date: 20051011
  Receipt Date: 20051011
  Transmission Date: 20060501
  Serious: Yes (Other)
  Sender: FDA-Public Use
  Company Number: None

PATIENT
  Age: 45 Year
  Sex: Female
  Weight: 65.318 kg

DRUGS (1)
  1. LEVAQUIN [Suspect]
     Indication: CYSTITIS
     Dates: start: 20030808, end: 20030815

REACTIONS (7)
  - BURNING SENSATION [None]
  - DIZZINESS [None]
  - FEELING ABNORMAL [None]
  - MUSCLE TWITCHING [None]
  - NEUROPATHY PERIPHERAL [None]
  - ORAL DISCOMFORT [None]
  - SENSORY DISTURBANCE [None]
